FAERS Safety Report 22592503 (Version 1)
Quarter: 2023Q2

REPORT INFORMATION
  Report Type: Spontaneous
  Country: US (occurrence: US)
  Receive Date: 20230613
  Receipt Date: 20230613
  Transmission Date: 20230722
  Serious: No
  Sender: FDA-Public Use
  Company Number: US-TEVA-2023-US-2893590

PATIENT
  Sex: Female

DRUGS (1)
  1. LIDOCAINE [Suspect]
     Active Substance: LIDOCAINE
     Indication: Product used for unknown indication
     Dosage: 5 %
     Route: 062

REACTIONS (3)
  - Application site irritation [Unknown]
  - Product adhesion issue [Unknown]
  - Product residue present [Unknown]
